FAERS Safety Report 10206990 (Version 1)
Quarter: 2014Q2

REPORT INFORMATION
  Report Type: Spontaneous
  Country: CH (occurrence: CH)
  Receive Date: 20140530
  Receipt Date: 20140530
  Transmission Date: 20141212
  Serious: Yes (Other)
  Sender: FDA-Public Use
  Company Number: CH-ACTAVIS-2014-11239

PATIENT
  Age: 48 Year
  Sex: Male

DRUGS (1)
  1. LISINOPRIL (UNKNOWN) [Suspect]
     Indication: HYPERTENSION
     Dosage: 10 MG, QAM
     Route: 065

REACTIONS (1)
  - Tremor [Unknown]
